FAERS Safety Report 5122635-3 (Version None)
Quarter: 2006Q4

REPORT INFORMATION
  Report Type: 
  Country: None (occurrence: None)
  Receive Date: 20061004
  Receipt Date: 20060921
  Transmission Date: 20070319
  Serious: Yes (Death, Life-Threatening)
  Sender: FDA-Public Use
  Company Number: 2005JP001967

PATIENT
  Age: 55 Year
  Sex: Male
  Weight: 49 kg

DRUGS (18)
  1. TACROLIMUS [Suspect]
     Indication: HEART TRANSPLANT
     Dosage: SEE IMAGE
     Route: 048
     Dates: start: 20010306, end: 20010306
  2. TACROLIMUS [Suspect]
     Indication: HEART TRANSPLANT
     Dosage: SEE IMAGE
     Route: 048
     Dates: start: 20010307, end: 20010308
  3. TACROLIMUS [Suspect]
     Indication: HEART TRANSPLANT
     Dosage: SEE IMAGE
     Route: 048
     Dates: start: 20010309, end: 20010313
  4. TACROLIMUS [Suspect]
     Indication: HEART TRANSPLANT
     Dosage: SEE IMAGE
     Route: 048
     Dates: start: 20010314, end: 20010314
  5. TACROLIMUS [Suspect]
     Indication: HEART TRANSPLANT
     Dosage: SEE IMAGE
     Route: 048
     Dates: start: 20010315, end: 20010315
  6. TACROLIMUS [Suspect]
     Indication: HEART TRANSPLANT
     Dosage: SEE IMAGE
     Route: 048
     Dates: start: 20010316, end: 20010317
  7. TACROLIMUS [Suspect]
     Indication: HEART TRANSPLANT
     Dosage: SEE IMAGE
     Route: 048
     Dates: start: 20010318, end: 20010318
  8. TACROLIMUS [Suspect]
     Indication: HEART TRANSPLANT
     Dosage: SEE IMAGE
     Route: 048
     Dates: start: 20010319, end: 20010320
  9. TACROLIMUS [Suspect]
     Indication: HEART TRANSPLANT
     Dosage: SEE IMAGE
     Route: 048
     Dates: start: 20010321, end: 20010321
  10. TACROLIMUS [Suspect]
     Indication: HEART TRANSPLANT
     Dosage: SEE IMAGE
     Route: 048
     Dates: start: 20010322, end: 20010324
  11. TACROLIMUS [Suspect]
     Indication: HEART TRANSPLANT
     Dosage: SEE IMAGE
     Route: 048
     Dates: start: 20010325, end: 20010326
  12. TACROLIMUS [Suspect]
     Indication: HEART TRANSPLANT
     Dosage: SEE IMAGE
     Route: 048
     Dates: start: 20010327, end: 20010327
  13. TACROLIMUS [Suspect]
     Indication: HEART TRANSPLANT
     Dosage: SEE IMAGE
     Route: 048
     Dates: start: 20010328, end: 20010329
  14. TACROLIMUS [Suspect]
     Indication: HEART TRANSPLANT
     Dosage: SEE IMAGE
     Route: 048
     Dates: start: 20010330, end: 20010330
  15. TACROLIMUS [Suspect]
     Indication: HEART TRANSPLANT
     Dosage: SEE IMAGE
     Route: 048
     Dates: start: 20010331, end: 20010331
  16. TACROLIMUS [Suspect]
     Indication: HEART TRANSPLANT
     Dosage: SEE IMAGE
     Route: 048
     Dates: start: 20010401, end: 20010401
  17. TACROLIMUS [Suspect]
     Indication: HEART TRANSPLANT
     Dosage: SEE IMAGE
     Route: 048
     Dates: start: 20010402, end: 20010403
  18. PREDNISOLONE [Concomitant]

REACTIONS (3)
  - CYTOMEGALOVIRUS INFECTION [None]
  - PLATELET COUNT DECREASED [None]
  - PSEUDOMONAS INFECTION [None]
